FAERS Safety Report 5599523-1 (Version None)
Quarter: 2008Q1

REPORT INFORMATION
  Report Type: 
  Country: None (occurrence: None)
  Receive Date: 20080117
  Receipt Date: 20080105
  Transmission Date: 20080703
  Serious: Yes (Hospitalization)
  Sender: FDA-Public Use
  Company Number: ADE2008-0099

PATIENT
  Age: 52 Year
  Sex: Male

DRUGS (4)
  1. AMLODIPINE BESYLATE [Suspect]
     Dosage: 325 MG
  2. ATENOLOL [Suspect]
     Dosage: 2000MG
  3. LOSARTAN POTASSIUM [Suspect]
     Dosage: 2000MG ORAL
     Route: 048
  4. ZOPICLONE [Suspect]
     Dosage: 37.5MG

REACTIONS (4)
  - ATRIOVENTRICULAR BLOCK FIRST DEGREE [None]
  - BLOOD PRESSURE DECREASED [None]
  - CARDIOTOXICITY [None]
  - OVERDOSE [None]
